FAERS Safety Report 6247858-1 (Version None)
Quarter: 2009Q2

REPORT INFORMATION
  Report Type: 
  Country: None (occurrence: None)
  Receive Date: 20090626
  Receipt Date: 20090616
  Transmission Date: 20091009
  Serious: Yes (Hospitalization)
  Sender: FDA-Public Use
  Company Number: JP-PFIZER INC-2009231377

PATIENT
  Age: 81 Year

DRUGS (9)
  1. ZOLOFT [Suspect]
     Dosage: 50 MG/DAY
     Route: 048
     Dates: start: 20081201
  2. HYPNOTICS AND SEDATIVES [Concomitant]
     Route: 048
  3. SEDIEL [Concomitant]
     Route: 048
  4. DAI-KENCHU-TO [Concomitant]
     Route: 048
  5. PANTOSIN [Concomitant]
  6. MAGNESIUM OXIDE [Concomitant]
     Route: 048
  7. GASCON [Concomitant]
     Route: 048
  8. ALOSENN [Concomitant]
     Route: 048
  9. LAXOBERON [Concomitant]
     Route: 048

REACTIONS (1)
  - PNEUMONIA [None]
